FAERS Safety Report 6935730-0 (Version None)
Quarter: 2010Q3

REPORT INFORMATION
  Report Type: 
  Country: None (occurrence: None)
  Receive Date: 20100819
  Receipt Date: 20100819
  Transmission Date: 20110219
  Serious: Yes (Other)
  Sender: FDA-Public Use
  Company Number: None

PATIENT
  Sex: Female
  Weight: 72.1219 kg

DRUGS (2)
  1. CIPROFLOXACIN [Suspect]
     Indication: CYSTITIS
     Dosage: 500MG BID ORALLY
     Route: 048
     Dates: start: 20100726
  2. CIPROFLOXACIN [Suspect]
     Indication: CYSTITIS
     Dosage: 500MG BID ORALLY
     Route: 048
     Dates: start: 20100812

REACTIONS (3)
  - FEELING COLD [None]
  - MYALGIA [None]
  - TENDON PAIN [None]
